FAERS Safety Report 9895474 (Version 2)
Quarter: 2014Q1

REPORT INFORMATION
  Report Type: Spontaneous
  Country: US (occurrence: US)
  Receive Date: 20140213
  Receipt Date: 20140213
  Transmission Date: 20141002
  Serious: No
  Sender: FDA-Public Use
  Company Number: US-BRISTOL-MYERS SQUIBB COMPANY-19398387

PATIENT
  Age: 62 Year
  Sex: Female
  Weight: 81.63 kg

DRUGS (10)
  1. ABATACEPT SUBQ INJECTION 125MG/ML [Suspect]
     Dosage: 1DF:125 MG/ML
     Route: 058
  2. PREMARIN [Concomitant]
     Dosage: TAB
  3. FUROSEMIDE [Concomitant]
     Dosage: TAB
  4. BENADRYL [Concomitant]
     Dosage: CAP
  5. SYNTHROID [Concomitant]
     Dosage: TAB
  6. PROVENTIL [Concomitant]
     Dosage: PRO VENTIL AER
  7. NEXIUM [Concomitant]
     Dosage: CAP
  8. METHOTREXATE [Concomitant]
     Dosage: 1DF:INJ 50MG/2ML
  9. TYLENOL [Concomitant]
     Dosage: TAB
  10. FOLIC ACID [Concomitant]
     Dosage: CAP

REACTIONS (7)
  - Injection site erythema [Unknown]
  - Injection site haemorrhage [Unknown]
  - Drug ineffective [Unknown]
  - Fall [Unknown]
  - Pain [Unknown]
  - Limb injury [Unknown]
  - Balance disorder [Unknown]
